FAERS Safety Report 6312884-0 (Version None)
Quarter: 2009Q3

REPORT INFORMATION
  Report Type: 
  Country: None (occurrence: None)
  Receive Date: 20090818
  Receipt Date: 20090804
  Transmission Date: 20100115
  Serious: Yes (Death)
  Sender: FDA-Public Use
  Company Number: US-TYCO HEALTHCARE/MALLINCKRODT-T200801883

PATIENT
  Sex: Female

DRUGS (48)
  1. OPTIMARK [Suspect]
     Indication: NUCLEAR MAGNETIC RESONANCE IMAGING BRAIN
     Dosage: UNK
     Route: 042
     Dates: start: 20040611, end: 20040611
  2. GADOLINIUM [Suspect]
     Indication: NUCLEAR MAGNETIC RESONANCE IMAGING BRAIN
     Dosage: UNK
     Dates: start: 20041024, end: 20041024
  3. OMNISCAN [Suspect]
     Indication: NUCLEAR MAGNETIC RESONANCE IMAGING BRAIN
     Dosage: UNK
     Dates: start: 20001221, end: 20001221
  4. OMNISCAN [Suspect]
     Dosage: UNK
     Dates: start: 20010130, end: 20010130
  5. MAGNEVIST [Suspect]
     Indication: NUCLEAR MAGNETIC RESONANCE IMAGING BRAIN
     Dosage: UNK
     Dates: start: 20041023, end: 20041023
  6. LONITEN [Concomitant]
     Dosage: 2.5 MG, QD (AM)
     Route: 048
  7. LIPITOR [Concomitant]
     Dosage: 20 MG, QD (NIGHT)
     Route: 048
  8. COUMADIN [Concomitant]
     Dosage: 3 MG, QD
     Route: 048
  9. COUMADIN [Concomitant]
     Dosage: 4 MG, QD (QHS)
  10. LEXAPRO [Concomitant]
     Dosage: 20 MG, QD
     Route: 048
  11. REGLAN [Concomitant]
     Dosage: 10 MG, BID
     Route: 048
  12. NORVASC [Concomitant]
     Dosage: 5 MG, IN AM TUE, THU, SUN
     Route: 048
  13. VASOTEC [Concomitant]
     Dosage: 20 MG, BID
     Route: 048
  14. OXYCODONE [Concomitant]
     Indication: PAIN
     Dosage: 10 MG, BID PRN
     Route: 048
  15. COREG [Concomitant]
     Dosage: 25 MG, BID
     Route: 048
  16. LANOXIN [Concomitant]
     Dosage: 0.125 MG, TUE,THU,SAT,SUN
  17. ATACAND [Concomitant]
     Dosage: 32 MG, QD
     Route: 048
  18. HUMALOG [Concomitant]
     Dosage: 15 UNITS, QD (AM)
  19. HUMALOG [Concomitant]
     Dosage: 10 UNITS, QD (PM)
  20. HUMALOG [Concomitant]
     Dosage: 50 IN THE AM; 20 IN THE PM
  21. VENOFER [Concomitant]
     Dosage: 50 MG, MON,WED
     Route: 042
  22. PROCRIT                            /00909301/ [Concomitant]
     Dosage: 15000 IU, TUES AND THURS WITH DIALYSIS
     Route: 042
  23. ZEMPLAR [Concomitant]
     Dosage: 3 UG, MON,WED,FRI
     Route: 042
  24. FOLIC ACID [Concomitant]
  25. NEURONTIN [Concomitant]
     Dosage: 300 MG, QD (QHS)
     Route: 048
  26. PREVACID [Concomitant]
  27. ZOFRAN [Concomitant]
  28. ISORDIL [Concomitant]
     Dosage: 10 MG, BID
     Route: 048
  29. COMBIVENT [Concomitant]
  30. PHOSLO [Concomitant]
  31. LOPRESSOR [Concomitant]
     Dosage: 50 MG, BID
     Route: 048
  32. XANAX [Concomitant]
  33. ZOLOFT [Concomitant]
  34. ZELNORM [Concomitant]
  35. ZESTRIL [Concomitant]
  36. QUININE [Concomitant]
  37. PRIMIDONE [Concomitant]
  38. DIAZEPAM [Concomitant]
  39. INSULIN [Concomitant]
  40. BENADRYL [Concomitant]
  41. HYDRALAZINE HCL [Concomitant]
     Dosage: 50 MG, BID
     Route: 048
  42. NITROGLYCERIN [Concomitant]
     Route: 060
  43. PLAVIX [Concomitant]
     Dosage: 75 MG, QD (QHS)
     Route: 048
  44. CLONIDINE [Concomitant]
     Indication: CHEST PAIN
     Dosage: 0.1 MG, BID PRN
  45. FLEXERIL [Concomitant]
     Dosage: 10 MG, TID PRN
     Route: 048
  46. ZOCOR [Concomitant]
     Dosage: 40 MG, QD
     Route: 048
  47. DILAUDID [Concomitant]
     Dosage: UNK
  48. LOMOTIL                            /00034001/ [Concomitant]

REACTIONS (4)
  - BACTERAEMIA [None]
  - DECUBITUS ULCER [None]
  - NEPHROGENIC SYSTEMIC FIBROSIS [None]
  - OEDEMA PERIPHERAL [None]
